FAERS Safety Report 18411884 (Version 1)
Quarter: 2020Q4

REPORT INFORMATION
  Report Type: Spontaneous
  Country: AR (occurrence: AR)
  Receive Date: 20201021
  Receipt Date: 20201021
  Transmission Date: 20210114
  Serious: Yes (Hospitalization)
  Sender: FDA-Public Use
  Company Number: AR-ASTRAZENECA-2020SF34930

PATIENT
  Sex: Female

DRUGS (2)
  1. SYMBICORT [Suspect]
     Active Substance: BUDESONIDE\FORMOTEROL FUMARATE DIHYDRATE
     Indication: ASTHMA
     Dosage: 4 PUFF, DAILY
     Route: 055
  2. CORTICOSTEROIDS [Concomitant]
     Active Substance: CORTICOSTEROID NOS

REACTIONS (2)
  - Asthma [Unknown]
  - Panic attack [Unknown]
